FAERS Safety Report 8884784 (Version 1)
Quarter: 2012Q4

REPORT INFORMATION
  Report Type: 
  Country: CA (occurrence: CA)
  Receive Date: 20121102
  Receipt Date: 20121102
  Transmission Date: 20130627
  Serious: Yes (Hospitalization, Other)
  Sender: FDA-Public Use
  Company Number: CA-PFIZER INC-2012267925

PATIENT
  Age: 60 Year
  Sex: Male

DRUGS (1)
  1. CELEBREX [Suspect]
     Indication: BACK PAIN
     Dosage: 200 mg, 1x/day
     Route: 048
     Dates: start: 2004, end: 2008

REACTIONS (2)
  - Acute myocardial infarction [Unknown]
  - Cardiac tamponade [Unknown]
